FAERS Safety Report 5001440-2 (Version None)
Quarter: 2006Q2

REPORT INFORMATION
  Report Type: 
  Country: None (occurrence: None)
  Receive Date: 20060512
  Receipt Date: 20050829
  Transmission Date: 20061013
  Serious: Yes (Hospitalization)
  Sender: FDA-Public Use
  Company Number: US-MERCK-0508USA04636

PATIENT
  Age: 40 Year
  Sex: Female
  Weight: 55 kg

DRUGS (1)
  1. VIOXX [Suspect]
     Indication: PAIN IN EXTREMITY
     Route: 048
     Dates: start: 20000101, end: 20030101

REACTIONS (7)
  - ACUTE MYOCARDIAL INFARCTION [None]
  - COLITIS [None]
  - COUGH [None]
  - HAEMORRHOIDS [None]
  - HYPERLIPIDAEMIA [None]
  - MIGRAINE [None]
  - PAIN IN EXTREMITY [None]
